FAERS Safety Report 6618866-3 (Version None)
Quarter: 2010Q1

REPORT INFORMATION
  Report Type: 
  Country: None (occurrence: None)
  Receive Date: 20100305
  Receipt Date: 20100305
  Transmission Date: 20100710
  Serious: Yes (Death)
  Sender: FDA-Public Use
  Company Number: None

PATIENT
  Sex: Male
  Weight: 86.1834 kg

DRUGS (1)
  1. METHOTREXATE [Suspect]
     Indication: MYASTHENIA GRAVIS
     Dosage: 8 TABLETS WEEKLY PO
     Route: 048
     Dates: start: 20080315, end: 20091016

REACTIONS (6)
  - BLOOD URINE PRESENT [None]
  - DISSEMINATED INTRAVASCULAR COAGULATION [None]
  - GENERAL PHYSICAL HEALTH DETERIORATION [None]
  - HERPES SIMPLEX [None]
  - SEPSIS [None]
  - URETHRITIS [None]
